FAERS Safety Report 9338495 (Version 3)
Quarter: 2014Q2

REPORT INFORMATION
  Report Type: Spontaneous
  Country: US (occurrence: US)
  Receive Date: 20130610
  Receipt Date: 20140404
  Transmission Date: 20141212
  Serious: Yes (Life-Threatening, Hospitalization)
  Sender: FDA-Public Use
  Company Number: US-JNJFOC-20130601559

PATIENT
  Age: 52 Year
  Sex: Female
  Weight: 75.75 kg

DRUGS (2)
  1. INVOKANA [Suspect]
     Indication: TYPE 2 DIABETES MELLITUS
     Route: 048
     Dates: start: 20130424, end: 20130505
  2. CRESTOR [Concomitant]
     Indication: DYSLIPIDAEMIA

REACTIONS (1)
  - Diabetic ketoacidosis [Recovered/Resolved]
